FAERS Safety Report 6217472-2 (Version None)
Quarter: 2009Q2

REPORT INFORMATION
  Report Type: 
  Country: None (occurrence: None)
  Receive Date: 20090608
  Receipt Date: 20081206
  Transmission Date: 20091009
  Serious: No
  Sender: FDA-Public Use
  Company Number: A0756009A

PATIENT
  Age: 63 Year
  Sex: Female

DRUGS (6)
  1. WELLBUTRIN XL [Suspect]
     Indication: DEPRESSION
     Dosage: 450MG IN THE MORNING
     Route: 048
  2. LAMICTAL [Concomitant]
     Dosage: 50MG IN THE MORNING
     Route: 048
  3. PAXIL [Concomitant]
     Dosage: 10MG IN THE MORNING
     Route: 048
  4. CLONAZEPAM [Concomitant]
     Dosage: 1TAB VARIABLE DOSE
     Route: 048
  5. INSULIN [Concomitant]
  6. DIABETES MEDICATION [Concomitant]
     Route: 048

REACTIONS (1)
  - FEELING ABNORMAL [None]
